FAERS Safety Report 6940435-6 (Version None)
Quarter: 2010Q3

REPORT INFORMATION
  Report Type: 
  Country: None (occurrence: None)
  Receive Date: 20100820
  Receipt Date: 20100812
  Transmission Date: 20110219
  Serious: Yes (Hospitalization)
  Sender: FDA-Public Use
  Company Number: 1000015690

PATIENT
  Sex: Female

DRUGS (1)
  1. CAMPRAL [Suspect]
     Dosage: 1998 MG (666 MG, 3 IN 1 D), ORAL
     Route: 048

REACTIONS (2)
  - BLOOD ALCOHOL INCREASED [None]
  - DRUG INEFFECTIVE [None]
